FAERS Safety Report 18124612 (Version 1)
Quarter: 2020Q3

REPORT INFORMATION
  Report Type: Spontaneous
  Country: CN (occurrence: CN)
  Receive Date: 20200807
  Receipt Date: 20200807
  Transmission Date: 20201103
  Serious: Yes (Hospitalization)
  Sender: FDA-Public Use
  Company Number: CN-ROCHE-2653705

PATIENT
  Age: 74 Year
  Sex: Female
  Weight: 60 kg

DRUGS (4)
  1. VINDESINE SULFATE [Suspect]
     Active Substance: VINDESINE SULFATE
     Indication: LYMPHOMA
     Route: 042
     Dates: start: 20200613
  2. MABTHERA [Suspect]
     Active Substance: RITUXIMAB
     Indication: LYMPHOMA
     Route: 041
     Dates: start: 20200612
  3. GEMCITABINE HYDROCHLORIDE. [Suspect]
     Active Substance: GEMCITABINE HYDROCHLORIDE
     Indication: LYMPHOMA
     Route: 041
     Dates: start: 20200613
  4. CYCLOPHOSPHAMIDE. [Suspect]
     Active Substance: CYCLOPHOSPHAMIDE
     Indication: LYMPHOMA
     Route: 042
     Dates: start: 20200613

REACTIONS (1)
  - Myelosuppression [Recovering/Resolving]

NARRATIVE: CASE EVENT DATE: 20200620
